FAERS Safety Report 5503004-0 (Version None)
Quarter: 2007Q4

REPORT INFORMATION
  Report Type: 
  Country: None (occurrence: None)
  Receive Date: 20071031
  Receipt Date: 20071026
  Transmission Date: 20080405
  Serious: Yes (Death, Hospitalization, Other)
  Sender: FDA-Public Use
  Company Number: FR-MERCK-0710USA05982

PATIENT
  Age: 56 Year
  Sex: Female

DRUGS (5)
  1. HYDROCORTONE [Suspect]
     Route: 065
  2. LEVOTHYROXINE SODIUM [Concomitant]
     Route: 065
  3. RITUXIMAB [Suspect]
     Indication: CHEMOTHERAPY
     Route: 042
  4. GEMCITABINE [Suspect]
     Indication: CHEMOTHERAPY
     Route: 042
  5. OXALIPLATIN [Suspect]
     Indication: CHEMOTHERAPY
     Route: 042

REACTIONS (3)
  - DYSPNOEA [None]
  - HAEMOLYTIC URAEMIC SYNDROME [None]
  - OEDEMA PERIPHERAL [None]
